FAERS Safety Report 23589295 (Version 2)
Quarter: 2024Q1

REPORT INFORMATION
  Report Type: Spontaneous
  Country: US (occurrence: US)
  Receive Date: 20240303
  Receipt Date: 20240308
  Transmission Date: 20240410
  Serious: No
  Sender: FDA-Public Use
  Company Number: US-SA-SAC20240301000188

PATIENT
  Age: 16 Year
  Sex: Male

DRUGS (2)
  1. DUPIXENT [Suspect]
     Active Substance: DUPILUMAB
     Indication: Dermatitis atopic
     Dosage: 600 MG, 1X
     Route: 058
     Dates: start: 20240107, end: 20240107
  2. DUPIXENT [Suspect]
     Active Substance: DUPILUMAB
     Dosage: 300 MG, QOW
     Route: 058

REACTIONS (7)
  - Upper respiratory tract congestion [Recovered/Resolved]
  - Headache [Recovered/Resolved]
  - Pyrexia [Recovered/Resolved]
  - Malaise [Recovered/Resolved]
  - Dizziness [Recovered/Resolved]
  - Nausea [Recovered/Resolved]
  - Nasal congestion [Recovered/Resolved]

NARRATIVE: CASE EVENT DATE: 20240101
